FAERS Safety Report 4731071-0 (Version None)
Quarter: 2005Q3

REPORT INFORMATION
  Report Type: 
  Country: None (occurrence: None)
  Receive Date: 20050726
  Receipt Date: 20041223
  Transmission Date: 20060218
  Serious: Yes (Hospitalization, Other)
  Sender: FDA-Public Use
  Company Number: 05GER0002

PATIENT
  Age: 66 Year
  Sex: Female

DRUGS (8)
  1. AGGRASTAT [Suspect]
     Indication: ACUTE CORONARY SYNDROME
     Dosage: 20ML/H 30MIN 5ML/H THEREAFTER
     Dates: start: 20030722, end: 20030723
  2. HEPARIN [Suspect]
     Indication: MYOCARDIAL INFARCTION
     Dosage: 2.7ML/H 12:00H-14:00H 2.2ML/H 14:00H-THEREAFTER
     Dates: start: 20030722, end: 20030723
  3. ASPIRIN [Suspect]
     Indication: MYOCARDIAL INFARCTION
     Dosage: 100MG QD
     Dates: start: 20030722, end: 20030723
  4. BISOPROLOL FUMARATE [Concomitant]
  5. CALCIUM CARBONATE (CALCIUM CARBONATE) [Concomitant]
  6. ALFACALCIDOL (ALFACALCIDOL) [Concomitant]
  7. MADOPAR (MADOPAR) [Concomitant]
  8. TAVEGIL (CLEMASTINE) [Concomitant]

REACTIONS (5)
  - C-REACTIVE PROTEIN INCREASED [None]
  - CEREBRAL HAEMORRHAGE [None]
  - HEMIPLEGIA [None]
  - HYPERTENSION [None]
  - NEUROLOGIC NEGLECT SYNDROME [None]
